FAERS Safety Report 19897151 (Version 1)
Quarter: 2021Q3

REPORT INFORMATION
  Report Type: Spontaneous
  Country: US (occurrence: US)
  Receive Date: 20210930
  Receipt Date: 20210930
  Transmission Date: 20211014
  Serious: No
  Sender: FDA-Public Use
  Company Number: US-AUROBINDO-AUR-APL-2020-059019

PATIENT
  Age: 68 Year
  Sex: Male

DRUGS (3)
  1. SUMATRIPTAN TABLETS 50MG [Suspect]
     Active Substance: SUMATRIPTAN
     Indication: MIGRAINE
     Dosage: 9 MILLIGRAM, AS NEEDED
     Route: 048
  2. SUMATRIPTAN TABLETS 50MG [Suspect]
     Active Substance: SUMATRIPTAN
     Dosage: 9 MILLIGRAM, (NEW LOT/BATCH)
     Route: 048
  3. EXCEDRIN [Concomitant]
     Active Substance: ACETAMINOPHEN\ASPIRIN\CAFFEINE
     Indication: PRODUCT USED FOR UNKNOWN INDICATION
     Dosage: UNK
     Route: 065

REACTIONS (2)
  - Drug ineffective [Unknown]
  - Product quality issue [Unknown]
